FAERS Safety Report 15028131 (Version 3)
Quarter: 2018Q3

REPORT INFORMATION
  Report Type: Spontaneous
  Country: PL (occurrence: PL)
  Receive Date: 20180619
  Receipt Date: 20180802
  Transmission Date: 20181010
  Serious: Yes (Death, Life-Threatening, Hospitalization, Other)
  Sender: FDA-Public Use
  Company Number: PHHY2018PL024461

PATIENT
  Age: 14 Year
  Sex: Female

DRUGS (9)
  1. ETOPOSIDE. [Suspect]
     Active Substance: ETOPOSIDE
     Indication: EXTRA-OSSEOUS EWING^S SARCOMA
     Route: 065
  2. DOXORUBICIN [Suspect]
     Active Substance: DOXORUBICIN
     Indication: EXTRA-OSSEOUS EWING^S SARCOMA
     Route: 065
  3. TEMOZOLOMIDE. [Suspect]
     Active Substance: TEMOZOLOMIDE
     Indication: EXTRA-OSSEOUS EWING^S SARCOMA
     Route: 065
  4. EPIRUBICIN [Suspect]
     Active Substance: EPIRUBICIN
     Indication: EXTRA-OSSEOUS EWING^S SARCOMA
     Route: 065
  5. CARBOPLATIN. [Suspect]
     Active Substance: CARBOPLATIN
     Indication: EXTRA-OSSEOUS EWING^S SARCOMA
     Route: 065
  6. IFOSFAMIDE. [Suspect]
     Active Substance: IFOSFAMIDE
     Indication: EXTRA-OSSEOUS EWING^S SARCOMA
     Route: 065
  7. VINCRISTINE [Suspect]
     Active Substance: VINCRISTINE
     Indication: EXTRA-OSSEOUS EWING^S SARCOMA
     Route: 065
  8. ACTINOMYCIN C [Suspect]
     Active Substance: CACTINOMYCIN
     Indication: EXTRA-OSSEOUS EWING^S SARCOMA
     Dosage: UNK
     Route: 065
  9. IRINOTECAN [Suspect]
     Active Substance: IRINOTECAN
     Indication: EXTRA-OSSEOUS EWING^S SARCOMA
     Route: 065

REACTIONS (8)
  - Oesophageal hypomotility [Unknown]
  - Gastrointestinal toxicity [Unknown]
  - Systemic candida [Fatal]
  - Bone marrow failure [Unknown]
  - Febrile neutropenia [Not Recovered/Not Resolved]
  - Vomiting [Unknown]
  - Neutropenia [Not Recovered/Not Resolved]
  - Drug ineffective [Fatal]
